FAERS Safety Report 5851567-8 (Version None)
Quarter: 2008Q3

REPORT INFORMATION
  Report Type: 
  Country: None (occurrence: None)
  Receive Date: 20080820
  Receipt Date: 20080809
  Transmission Date: 20090109
  Serious: Yes (Death, Hospitalization)
  Sender: FDA-Public Use
  Company Number: IN-BAXTER-2008BH008556

PATIENT
  Age: 59 Year
  Sex: Male
  Weight: 58 kg

DRUGS (1)
  1. DIANEAL [Suspect]
     Indication: RENAL FAILURE CHRONIC
     Dosage: DOSE UNIT:UNKNOWN
     Route: 033
     Dates: start: 20080601, end: 20080727

REACTIONS (2)
  - HEMIPLEGIA [None]
  - MYOCARDIAL INFARCTION [None]
